FAERS Safety Report 6956873-1 (Version None)
Quarter: 2010Q3

REPORT INFORMATION
  Report Type: 
  Country: None (occurrence: None)
  Receive Date: 20100826
  Receipt Date: 20100813
  Transmission Date: 20110219
  Serious: Yes (Hospitalization)
  Sender: FDA-Public Use
  Company Number: 2010-2761

PATIENT
  Age: 75 Year
  Sex: Female

DRUGS (1)
  1. SOMATULINE DEPOT [Suspect]
     Indication: ACROMEGALY
     Dosage: 90 MG, 1 IN 28 D), SUBCUTANEOUS
     Route: 058
     Dates: start: 20100713

REACTIONS (3)
  - CONDITION AGGRAVATED [None]
  - TREMOR [None]
  - VERTIGO [None]
